FAERS Safety Report 21876565 (Version 3)
Quarter: 2023Q1

REPORT INFORMATION
  Report Type: Spontaneous
  Country: CA (occurrence: None)
  Receive Date: 20230118
  Receipt Date: 20230224
  Transmission Date: 20230417
  Serious: Yes (Other)
  Sender: FDA-Public Use
  Company Number: CA-ROCHE-3266132

PATIENT
  Age: 23 Year
  Sex: Female

DRUGS (3)
  1. RITUXIMAB [Suspect]
     Active Substance: RITUXIMAB
     Indication: Encephalitis autoimmune
     Route: 065
  2. HUMAN IMMUNOGLOBULIN G [Concomitant]
     Active Substance: HUMAN IMMUNOGLOBULIN G
     Indication: Encephalitis autoimmune
     Route: 042
  3. TOCILIZUMAB [Concomitant]
     Active Substance: TOCILIZUMAB
     Indication: Encephalitis autoimmune
     Route: 065

REACTIONS (6)
  - Drug ineffective for unapproved indication [Unknown]
  - Dyskinesia [Recovered/Resolved]
  - Intentional self-injury [Recovered/Resolved]
  - Off label use [Unknown]
  - Face injury [Recovered/Resolved]
  - Mouth injury [Recovered/Resolved]
